FAERS Safety Report 9540628 (Version 2)
Quarter: 2013Q4

REPORT INFORMATION
  Report Type: Report from Study
  Country: CA (occurrence: CA)
  Receive Date: 20130920
  Receipt Date: 20131106
  Transmission Date: 20140711
  Serious: Yes (Other)
  Sender: FDA-Public Use
  Company Number: PHHY2013CA103226

PATIENT
  Age: 28 Year
  Sex: Female

DRUGS (2)
  1. CLOZARIL [Suspect]
     Dosage: UNK
     Dates: start: 20130806, end: 20130913
  2. METRONIDAZOLE [Suspect]
     Indication: ORAL CANDIDIASIS
     Dosage: UNK UKN, UNK
     Route: 042

REACTIONS (4)
  - Agranulocytosis [Unknown]
  - White blood cell count decreased [Recovering/Resolving]
  - Neutrophil count decreased [Unknown]
  - Tooth infection [Unknown]
